FAERS Safety Report 6103383-X (Version None)
Quarter: 2009Q1

REPORT INFORMATION
  Report Type: 
  Country: None (occurrence: None)
  Receive Date: 20090305
  Receipt Date: 20080819
  Transmission Date: 20090719
  Serious: No
  Sender: FDA-Public Use
  Company Number: US-BAYER-200831433NA

PATIENT
  Sex: Female

DRUGS (1)
  1. BETASERON [Suspect]
     Indication: MULTIPLE SCLEROSIS
     Route: 058

REACTIONS (4)
  - INJECTION SITE MASS [None]
  - INJECTION SITE PAIN [None]
  - INJECTION SITE RASH [None]
  - RASH [None]
